FAERS Safety Report 17766770 (Version 2)
Quarter: 2020Q2

REPORT INFORMATION
  Report Type: Spontaneous
  Country: IE (occurrence: IE)
  Receive Date: 20200511
  Receipt Date: 20200618
  Transmission Date: 20200714
  Serious: Yes (Hospitalization, Other)
  Sender: FDA-Public Use
  Company Number: IE-BRACCO-2020IE01916

PATIENT
  Age: 79 Year
  Sex: Male

DRUGS (9)
  1. NEXIUM [Concomitant]
     Active Substance: ESOMEPRAZOLE MAGNESIUM
     Dosage: UNK, QD
  2. VERAPAMIL [Suspect]
     Active Substance: VERAPAMIL HYDROCHLORIDE
     Indication: ANGIOGRAM
     Route: 013
     Dates: start: 20200416, end: 20200416
  3. HEPARIN [Suspect]
     Active Substance: HEPARIN SODIUM
     Indication: ANGIOGRAM
     Route: 013
     Dates: start: 20200416, end: 20200416
  4. SOLPADEINE                         /00154101/ [Concomitant]
     Active Substance: ACETAMINOPHEN\CAFFEINE\CODEINE PHOSPHATE
  5. ASPIRIN                            /00002701/ [Concomitant]
     Active Substance: ASPIRIN
     Dosage: 75 MG
  6. NIOPAM [Suspect]
     Active Substance: IOPAMIDOL
     Indication: ANGIOGRAM
     Dosage: 155 ML, SINGLE (PERI PROCEDURE)
     Route: 013
     Dates: start: 20200416, end: 20200416
  7. ATORVASTATIN                       /01326102/ [Concomitant]
     Active Substance: ATORVASTATIN
     Dosage: 20 MG
  8. BRILIQUE [Concomitant]
     Active Substance: TICAGRELOR
  9. MICARDIS [Concomitant]
     Active Substance: TELMISARTAN

REACTIONS (5)
  - Depressed level of consciousness [Recovered/Resolved]
  - Cerebrovascular accident [Recovered/Resolved]
  - Visual impairment [Recovered/Resolved]
  - Nervous system disorder [Recovered/Resolved]
  - Confusional state [Recovered/Resolved]

NARRATIVE: CASE EVENT DATE: 20200416
